FAERS Safety Report 18541589 (Version 2)
Quarter: 2020Q4

REPORT INFORMATION
  Report Type: Spontaneous
  Country: US (occurrence: US)
  Receive Date: 20201124
  Receipt Date: 20201127
  Transmission Date: 20210114
  Serious: Yes (Death, Hospitalization, Other)
  Sender: FDA-Public Use
  Company Number: US-ASTRAZENECA-2020SF54099

PATIENT
  Age: 969 Month
  Sex: Female
  Weight: 47.2 kg

DRUGS (1)
  1. TAGRISSO [Suspect]
     Active Substance: OSIMERTINIB
     Indication: LUNG NEOPLASM MALIGNANT
     Dosage: 1 DF DAILY AFTER HER BREAKFAST
     Route: 048
     Dates: start: 20200617

REACTIONS (12)
  - Diarrhoea [Unknown]
  - Gait disturbance [Unknown]
  - Weight decreased [Unknown]
  - Haemoglobin decreased [Recovering/Resolving]
  - Abdominal rigidity [Unknown]
  - Dyspnoea [Unknown]
  - Cardio-respiratory arrest [Fatal]
  - Peripheral swelling [Unknown]
  - Infection parasitic [Unknown]
  - Decreased appetite [Unknown]
  - Photophobia [Unknown]
  - Lacrimation increased [Unknown]

NARRATIVE: CASE EVENT DATE: 202008
